FAERS Safety Report 23881221 (Version 1)
Quarter: 2024Q2

REPORT INFORMATION
  Report Type: Spontaneous
  Country: AU (occurrence: AU)
  Receive Date: 20240521
  Receipt Date: 20240521
  Transmission Date: 20240716
  Serious: Yes (Hospitalization)
  Sender: FDA-Public Use
  Company Number: AU-SUN PHARMACEUTICAL INDUSTRIES LTD-2024R1-446762

PATIENT
  Age: 56 Year
  Sex: Male
  Weight: 72.3 kg

DRUGS (21)
  1. GEMCITABINE [Suspect]
     Active Substance: GEMCITABINE
     Indication: Neoplasm
     Dosage: 1000 MILLIGRAM/SQ. METER, ON DAY 1, 8 AND 15
     Route: 042
     Dates: start: 20240311, end: 20240326
  2. ABRAXANE [Suspect]
     Active Substance: PACLITAXEL
     Indication: Neoplasm
     Dosage: 125 MILLIGRAM/SQ. METER, ON DAY 1, 8 AND 15
     Route: 042
     Dates: start: 20240311, end: 20240326
  3. CAFELKIBART [Suspect]
     Active Substance: CAFELKIBART
     Indication: Neoplasm
     Dosage: 10 MILLIGRAM/KILOGRAM ONCE EVERY 2 WEEKS
     Route: 042
     Dates: start: 20240311, end: 20240326
  4. ALPRAZOLAM [Concomitant]
     Active Substance: ALPRAZOLAM
     Indication: Anxiety
     Dosage: 0.25 MILLIGRAM, PRN
     Route: 048
     Dates: start: 2014
  5. CAPSAICIN [Concomitant]
     Active Substance: CAPSAICIN
     Indication: Pain
     Dosage: 0.025 PERCENT, PRN
     Route: 061
     Dates: start: 2021
  6. DIAZEPAM [Concomitant]
     Active Substance: DIAZEPAM
     Indication: Anxiety
     Dosage: 5-10MG, PRN
     Route: 048
     Dates: start: 2011
  7. DIAZEPAM [Concomitant]
     Active Substance: DIAZEPAM
     Indication: Insomnia
  8. DULOXETINE [Concomitant]
     Active Substance: DULOXETINE
     Indication: Depression
     Dosage: 90 MILLIGRAM, QD
     Route: 048
     Dates: start: 2011
  9. ENO [Concomitant]
     Active Substance: ALUMINUM HYDROXIDE\DIMETHICONE\MAGNESIUM HYDROXIDE
     Indication: Gastrooesophageal reflux disease
     Dosage: 1SPOON, PRN
     Route: 048
     Dates: start: 20240311
  10. Ferric derisomaltase [Concomitant]
     Indication: Iron deficiency
     Dosage: 1500 MILLIGRAM, STAT
     Route: 042
     Dates: start: 20240326
  11. IBUPROFEN [Concomitant]
     Active Substance: IBUPROFEN
     Indication: Pain
     Dosage: 400 MILLIGRAM, PRN
     Route: 048
     Dates: start: 2011
  12. INSULIN NOS [Concomitant]
     Active Substance: INSULIN NOS
     Indication: Type 2 diabetes mellitus
     Dosage: UNK (CONTINUOUS INFUSION)
     Route: 058
     Dates: start: 2019
  13. LOPERAMIDE [Concomitant]
     Active Substance: LOPERAMIDE
     Indication: Diarrhoea
     Dosage: 2 MILLIGRAM, PRN
     Route: 048
     Dates: start: 20240319
  14. MIRTAZAPINE [Concomitant]
     Active Substance: MIRTAZAPINE
     Indication: Depression
     Dosage: 45 MILLIGRAM, QD
     Route: 048
     Dates: start: 2011
  15. SODIUM CHLORIDE [Concomitant]
     Active Substance: SODIUM CHLORIDE
     Indication: Diarrhoea
     Dosage: 2 LITER, STAT
     Route: 042
     Dates: start: 20240326
  16. OXYCODONE [Concomitant]
     Active Substance: OXYCODONE\OXYCODONE HYDROCHLORIDE
     Indication: Pain
     Dosage: 10 MILLIGRAM, PRN
     Route: 048
     Dates: start: 2011
  17. PANTOPRAZOLE [Concomitant]
     Active Substance: PANTOPRAZOLE
     Indication: Gastrooesophageal reflux disease
     Dosage: 80 MILLIGRAM IMMEDIATE (STAT)
     Route: 048
     Dates: start: 20240311
  18. ACETAMINOPHEN [Concomitant]
     Active Substance: ACETAMINOPHEN
     Indication: Pain
     Dosage: 1 GRAM, PRN
     Route: 048
     Dates: start: 2011
  19. AMLODIPINE\PERINDOPRIL [Concomitant]
     Active Substance: AMLODIPINE\PERINDOPRIL
     Indication: Hypertension
     Dosage: 10/10MG, QD
     Route: 048
     Dates: start: 2011
  20. QUETIAPINE [Concomitant]
     Active Substance: QUETIAPINE
     Indication: Bipolar disorder
     Dosage: 75 MILLIGRAM, QD
     Route: 048
     Dates: start: 2023
  21. Tapentadol SR [Concomitant]
     Indication: Pain
     Dosage: 50 MILLIGRAM, BID
     Route: 048
     Dates: start: 2011

REACTIONS (5)
  - Mucosal inflammation [Not Recovered/Not Resolved]
  - Dizziness [Recovered/Resolved]
  - Fatigue [Unknown]
  - Myalgia [Unknown]
  - Diarrhoea [Recovered/Resolved]

NARRATIVE: CASE EVENT DATE: 20240311
